FAERS Safety Report 25649185 (Version 1)
Quarter: 2025Q3

REPORT INFORMATION
  Report Type: Spontaneous
  Country: EU (occurrence: EU)
  Receive Date: 20250806
  Receipt Date: 20250806
  Transmission Date: 20251020
  Serious: Yes (Other)
  Sender: ORGANON
  Company Number: EU-ORGANON-O2508BEL000268

PATIENT
  Age: 27 Year
  Sex: Female

DRUGS (3)
  1. ETONOGESTREL [Suspect]
     Active Substance: ETONOGESTREL
     Route: 059
     Dates: start: 202307
  2. ETONOGESTREL [Concomitant]
     Active Substance: ETONOGESTREL
     Route: 059
  3. ETONOGESTREL [Concomitant]
     Active Substance: ETONOGESTREL
     Route: 059

REACTIONS (1)
  - Vaginal haemorrhage [Not Recovered/Not Resolved]
